FAERS Safety Report 19648590 (Version 1)
Quarter: 2021Q3

REPORT INFORMATION
  Report Type: Spontaneous
  Country: US (occurrence: US)
  Receive Date: 20210803
  Receipt Date: 20210803
  Transmission Date: 20211014
  Serious: Yes (Hospitalization)
  Sender: FDA-Public Use
  Company Number: US-B.I. PHARMACEUTICALS,INC./RIDGEFIELD-2021-BI-119057

PATIENT
  Sex: Male

DRUGS (1)
  1. JARDIANCE [Suspect]
     Active Substance: EMPAGLIFLOZIN
     Indication: PRODUCT USED FOR UNKNOWN INDICATION

REACTIONS (5)
  - Renal disorder [Not Recovered/Not Resolved]
  - Ill-defined disorder [Unknown]
  - Urinary tract infection [Not Recovered/Not Resolved]
  - Pain [Not Recovered/Not Resolved]
  - Bladder disorder [Unknown]
